FAERS Safety Report 6393931-7 (Version None)
Quarter: 2009Q4

REPORT INFORMATION
  Report Type: 
  Country: None (occurrence: None)
  Receive Date: 20091008
  Receipt Date: 20090928
  Transmission Date: 20100525
  Serious: Yes (Hospitalization)
  Sender: FDA-Public Use
  Company Number: US-ABBOTT-09P-163-0599522-00

PATIENT
  Sex: Male
  Weight: 79.45 kg

DRUGS (3)
  1. BIAXIN [Suspect]
     Indication: SINUSITIS
     Dates: start: 20090922, end: 20090925
  2. BIAXIN [Suspect]
     Indication: UPPER RESPIRATORY TRACT INFECTION
  3. MUCINEX [Concomitant]
     Indication: SINUSITIS

REACTIONS (10)
  - COUGH [None]
  - CYANOSIS [None]
  - ERYTHEMA [None]
  - FEELING HOT [None]
  - JOINT SWELLING [None]
  - OXYGEN SATURATION DECREASED [None]
  - PAIN OF SKIN [None]
  - PETECHIAE [None]
  - URTICARIA [None]
  - WHEEZING [None]
